FAERS Safety Report 15617624 (Version 1)
Quarter: 2018Q4

REPORT INFORMATION
  Report Type: Spontaneous
  Country: US (occurrence: US)
  Receive Date: 20181114
  Receipt Date: 20181114
  Transmission Date: 20190205
  Serious: Yes (Disabling)
  Sender: FDA-Public Use
  Company Number: None

PATIENT
  Age: 68 Year
  Sex: Female
  Weight: 72 kg

DRUGS (4)
  1. ALEVE [Concomitant]
     Active Substance: NAPROXEN SODIUM
  2. CLONAZEPAM 0.5 MG TABLETS. [Suspect]
     Active Substance: CLONAZEPAM
     Indication: PANIC ATTACK
     Dosage: ?          QUANTITY:4 TABLET(S);?
     Route: 048
  3. ESTRADIOL. [Concomitant]
     Active Substance: ESTRADIOL
  4. CLARIN [Concomitant]

REACTIONS (8)
  - Feeling abnormal [None]
  - Insomnia [None]
  - Panic attack [None]
  - Fall [None]
  - Product substitution issue [None]
  - Impaired work ability [None]
  - Hand fracture [None]
  - Dizziness [None]

NARRATIVE: CASE EVENT DATE: 20180707
